FAERS Safety Report 5747401-7 (Version None)
Quarter: 2008Q2

REPORT INFORMATION
  Report Type: 
  Country: None (occurrence: None)
  Receive Date: 20080523
  Receipt Date: 20080521
  Transmission Date: 20081010
  Serious: Yes (Death, Hospitalization, Other)
  Sender: FDA-Public Use
  Company Number: US-BRISTOL-MYERS SQUIBB COMPANY-14059638

PATIENT
  Age: 74 Year
  Sex: Female
  Weight: 67 kg

DRUGS (26)
  1. CARBOPLATIN [Suspect]
     Dosage: DOSE IS TAKEN AS AUC 6, DAY1. LAST ADMINISTERED DATE 25/12/07
     Dates: start: 20071228
  2. PACLITAXEL [Suspect]
     Dosage: DOSE IS TAKEN AS 200MG/M2. LAST ADMINISTERED DATE 25/12/07
     Dates: start: 20071228
  3. ETOPOSIDE [Suspect]
     Dosage: LAST ADMINISTERED DATE 6/1/07
     Dates: start: 20080106
  4. CELEBREX [Concomitant]
     Route: 048
  5. PROZAC [Concomitant]
     Route: 048
  6. SYNTHROID [Concomitant]
     Route: 048
  7. LOTREL [Concomitant]
     Dosage: 1DOSAGE FORM = 5/10MG
     Route: 048
  8. WELLBUTRIN [Concomitant]
     Route: 048
  9. TRANXENE [Concomitant]
     Dosage: 3 TO 6 PER WEEK
     Route: 048
  10. HYDROCHLOROTHIAZIDE [Concomitant]
     Route: 048
  11. PROTONIX [Concomitant]
     Route: 048
  12. TAMOXIFEN CITRATE [Concomitant]
     Route: 048
  13. NULEV [Concomitant]
     Dosage: 125MG OF 40PRN
     Route: 048
  14. LAMISIL [Concomitant]
     Route: 048
  15. IRON [Concomitant]
     Route: 048
  16. ASCORBIC ACID [Concomitant]
     Route: 048
  17. MULTI-VITAMIN [Concomitant]
     Route: 048
  18. VICODIN [Concomitant]
  19. ZOSYN [Concomitant]
     Dosage: Q6
     Route: 042
  20. MAGNESIUM [Concomitant]
     Route: 042
  21. IMODIUM [Concomitant]
     Dosage: DAILY
     Route: 048
  22. DIFLUCAN [Concomitant]
     Route: 048
  23. LORAZEPAM [Concomitant]
     Dosage: Q40
     Route: 042
  24. NEUPOGEN [Concomitant]
     Route: 058
  25. LEVAQUIN [Concomitant]
     Route: 042
  26. HEPARIN [Concomitant]
     Dosage: Q8
     Route: 058

REACTIONS (7)
  - DEHYDRATION [None]
  - HAEMOGLOBIN DECREASED [None]
  - MUCOSAL INFLAMMATION [None]
  - NEUTROPHIL COUNT DECREASED [None]
  - PAIN [None]
  - PNEUMONIA [None]
  - WHITE BLOOD CELL COUNT DECREASED [None]
